FAERS Safety Report 5470629-0 (Version None)
Quarter: 2007Q3

REPORT INFORMATION
  Report Type: 
  Country: None (occurrence: None)
  Receive Date: 20070928
  Receipt Date: 20070918
  Transmission Date: 20080115
  Serious: Yes (Death, Hospitalization)
  Sender: FDA-Public Use
  Company Number: HQWYE219025JUL07

PATIENT
  Age: 72 Year
  Sex: Male

DRUGS (13)
  1. CORDARONE [Suspect]
     Indication: TACHYCARDIA PAROXYSMAL
     Route: 048
     Dates: start: 20060101, end: 20060101
  2. CORDARONE [Suspect]
     Dosage: UNSPECIFIED
     Route: 048
     Dates: start: 20070109
  3. SECTRAL [Concomitant]
     Indication: MYOCARDIAL INFARCTION
     Route: 048
     Dates: start: 20061228
  4. SECTRAL [Concomitant]
     Indication: CORONARY ARTERY BYPASS
  5. ASPEGIC 325 [Concomitant]
     Indication: MYOCARDIAL INFARCTION
     Route: 048
     Dates: start: 20061228
  6. ASPEGIC 325 [Concomitant]
     Indication: CORONARY ARTERY BYPASS
  7. LOVENOX [Concomitant]
     Indication: MYOCARDIAL INFARCTION
     Route: 058
     Dates: start: 20061228
  8. TAHOR [Concomitant]
     Indication: MYOCARDIAL INFARCTION
     Route: 048
     Dates: start: 20061228
  9. INIPOMP [Concomitant]
     Indication: MYOCARDIAL INFARCTION
     Dosage: UNSPECIFIED
     Route: 048
     Dates: start: 20061228
  10. TRIATEC [Concomitant]
     Indication: MYOCARDIAL INFARCTION
     Route: 048
     Dates: start: 20061228
  11. PLAVIX [Concomitant]
     Indication: MYOCARDIAL INFARCTION
     Route: 048
     Dates: start: 20061228
  12. PLAVIX [Concomitant]
     Indication: CORONARY ARTERY BYPASS
  13. CORTANCYL [Concomitant]
     Indication: MYOCARDIAL INFARCTION
     Route: 048
     Dates: start: 20061228

REACTIONS (2)
  - INTERSTITIAL LUNG DISEASE [None]
  - NOSOCOMIAL INFECTION [None]
